FAERS Safety Report 25920267 (Version 1)
Quarter: 2025Q4

REPORT INFORMATION
  Report Type: Spontaneous
  Country: US (occurrence: None)
  Receive Date: 20251014
  Receipt Date: 20251014
  Transmission Date: 20260118
  Serious: Yes (Death)
  Sender: FDA-CTU
  Company Number: None

PATIENT
  Age: 67 Year
  Sex: Male

DRUGS (11)
  1. COLLAGENASE SANTYL [Suspect]
     Active Substance: COLLAGENASE CLOSTRIDIUM HISTOLYTICUM
     Indication: Wound
     Dosage: 250U/GM DAILY TROPICAL
     Route: 061
     Dates: start: 20250820, end: 20250930
  2. Ascorbid Acid 1000gm [Concomitant]
  3. ATORVASTATIN [Concomitant]
     Active Substance: ATORVASTATIN
  4. Dronabilol 2.5mg [Concomitant]
  5. GABAPENTIN [Concomitant]
     Active Substance: GABAPENTIN
  6. Cefpodoxime Pro 100mg [Concomitant]
  7. DAPTOMYCIN [Concomitant]
     Active Substance: DAPTOMYCIN
  8. LACTULOSE [Concomitant]
     Active Substance: LACTULOSE
  9. MIDODRINE [Concomitant]
     Active Substance: MIDODRINE
  10. LINEZOLID [Concomitant]
     Active Substance: LINEZOLID
  11. PREGABALIN [Concomitant]
     Active Substance: PREGABALIN

REACTIONS (1)
  - Death [None]

NARRATIVE: CASE EVENT DATE: 20250930
